FAERS Safety Report 7864875-6 (Version None)
Quarter: 2011Q4

REPORT INFORMATION
  Report Type: 
  Country: None (occurrence: None)
  Receive Date: 20111028
  Receipt Date: 20100909
  Transmission Date: 20120403
  Serious: No
  Sender: FDA-Public Use
  Company Number: US-GLAXOSMITHKLINE-A0880519A

PATIENT
  Age: 73 Year
  Sex: Female

DRUGS (9)
  1. CALCIUM + D [Concomitant]
  2. SYNTHROID [Concomitant]
  3. ASPIRIN [Concomitant]
  4. ADVAIR DISKUS 100/50 [Suspect]
     Indication: LUNG OPERATION
     Dosage: 1PUFF TWICE PER DAY
     Route: 055
  5. LIPITOR [Concomitant]
  6. DARVOCET [Concomitant]
  7. TENORMIN [Concomitant]
  8. MULTI-VITAMIN [Concomitant]
  9. AMBIEN [Concomitant]

REACTIONS (2)
  - DRUG INEFFECTIVE [None]
  - PRODUCT QUALITY ISSUE [None]
